FAERS Safety Report 17143789 (Version 1)
Quarter: 2019Q4

REPORT INFORMATION
  Report Type: Spontaneous
  Country: US (occurrence: US)
  Receive Date: 20191212
  Receipt Date: 20191212
  Transmission Date: 20200122
  Serious: No
  Sender: FDA-Public Use
  Company Number: US-AMGEN-USASP2019205069

PATIENT
  Age: 27 Year
  Sex: Female

DRUGS (1)
  1. NEUPOGEN [Suspect]
     Active Substance: FILGRASTIM
     Indication: POST PROCEDURAL COMPLICATION
     Dosage: 600 MICROGRAM, QD (2 VIALS OF 300 MCG EVERY DAY FOR 5 DAYS)
     Route: 058
     Dates: start: 20191204

REACTIONS (2)
  - Off label use [Unknown]
  - Product storage error [Unknown]

NARRATIVE: CASE EVENT DATE: 20191204
